FAERS Safety Report 4824626-6 (Version None)
Quarter: 2005Q4

REPORT INFORMATION
  Report Type: 
  Country: None (occurrence: None)
  Receive Date: 20051108
  Receipt Date: 20051026
  Transmission Date: 20060501
  Serious: Yes (Hospitalization)
  Sender: FDA-Public Use
  Company Number: 2005149482

PATIENT
  Age: 33 Year
  Sex: Female

DRUGS (1)
  1. DEPO-PROVERA [Suspect]
     Indication: MENORRHAGIA
     Dosage: INTRAMUSCULAR  2 MONTHS AGO
     Route: 030

REACTIONS (2)
  - METRORRHAGIA [None]
  - VOMITING PSYCHOGENIC [None]
